FAERS Safety Report 15617685 (Version 4)
Quarter: 2019Q1

REPORT INFORMATION
  Report Type: Report from Study
  Country: IT (occurrence: IT)
  Receive Date: 20181114
  Receipt Date: 20190107
  Transmission Date: 20190417
  Serious: Yes (Other)
  Sender: FDA-Public Use
  Company Number: PHHO2018IT012111

PATIENT
  Age: 62 Year
  Sex: Female
  Weight: 59 kg

DRUGS (5)
  1. LEE011 [Suspect]
     Active Substance: RIBOCICLIB
     Indication: BREAST CANCER
     Dosage: 600 MG, QD
     Route: 048
     Dates: start: 20180424, end: 20180514
  2. LEE011 [Suspect]
     Active Substance: RIBOCICLIB
     Dosage: 400 MG, QD
     Route: 048
     Dates: start: 20180725
  3. CGS 20267 [Suspect]
     Active Substance: LETROZOLE
     Indication: BREAST CANCER
     Dosage: 2.5 MG, QD
     Route: 048
     Dates: start: 20180424
  4. LEE011 [Suspect]
     Active Substance: RIBOCICLIB
     Dosage: 400 MG, QD
     Route: 048
     Dates: start: 20180604, end: 20180710
  5. LEE011 [Suspect]
     Active Substance: RIBOCICLIB
     Dosage: 200 MG, QD
     Route: 048
     Dates: start: 20181001, end: 20181005

REACTIONS (2)
  - Neutrophil count decreased [Recovered/Resolved with Sequelae]
  - Overdose [Recovered/Resolved]

NARRATIVE: CASE EVENT DATE: 20180710
